FAERS Safety Report 16641092 (Version 2)
Quarter: 2019Q3

REPORT INFORMATION
  Report Type: Spontaneous
  Country: US (occurrence: US)
  Receive Date: 20190729
  Receipt Date: 20190909
  Transmission Date: 20191004
  Serious: No
  Sender: FDA-Public Use
  Company Number: US-009507513-1907USA012763

PATIENT
  Age: 37 Year
  Sex: Female
  Weight: 102.49 kg

DRUGS (1)
  1. NEXPLANON [Suspect]
     Active Substance: ETONOGESTREL
     Dosage: 1 SUBDERMAL EVERY 3 YEARS IN LEFT ARM
     Route: 059
     Dates: start: 201606

REACTIONS (3)
  - Menstruation irregular [Unknown]
  - Incorrect product administration duration [Unknown]
  - Complication associated with device [Not Recovered/Not Resolved]

NARRATIVE: CASE EVENT DATE: 201906
